FAERS Safety Report 8272219-3 (Version None)
Quarter: 2012Q2

REPORT INFORMATION
  Report Type: 
  Country: None (occurrence: None)
  Receive Date: 20120410
  Receipt Date: 20120404
  Transmission Date: 20120825
  Serious: Yes (Hospitalization, Other)
  Sender: FDA-Public Use
  Company Number: US-AMGEN-USASP2011061749

PATIENT
  Age: 13 Year
  Sex: Female
  Weight: 92.7 kg

DRUGS (2)
  1. ENBREL [Suspect]
     Indication: JUVENILE ARTHRITIS
     Dosage: UNK
     Dates: start: 20111101, end: 20111106
  2. ENBREL [Suspect]
     Dosage: 50 MG, UNK
     Dates: start: 20111022, end: 20111105

REACTIONS (13)
  - DYSPNOEA [None]
  - POST LUMBAR PUNCTURE SYNDROME [None]
  - URTICARIA [None]
  - CHEST PAIN [None]
  - CHEST DISCOMFORT [None]
  - ABDOMINAL PAIN UPPER [None]
  - MUSCLE TWITCHING [None]
  - POSTURAL ORTHOSTATIC TACHYCARDIA SYNDROME [None]
  - ARTHRALGIA [None]
  - DIZZINESS [None]
  - DRUG HYPERSENSITIVITY [None]
  - HYPOAESTHESIA [None]
  - PARAESTHESIA [None]
